FAERS Safety Report 7471383-3 (Version None)
Quarter: 2011Q2

REPORT INFORMATION
  Report Type: 
  Country: None (occurrence: None)
  Receive Date: 20110510
  Receipt Date: 20110428
  Transmission Date: 20111010
  Serious: Yes (Death, Other)
  Sender: FDA-Public Use
  Company Number: US-ELI_LILLY_AND_COMPANY-US201104008048

PATIENT
  Sex: Male

DRUGS (9)
  1. AMBIEN [Concomitant]
     Dosage: 5 MG, QD
  2. ZYPREXA ZYDIS [Suspect]
     Dosage: 5 MG, EACH EVENING
     Dates: start: 20080915
  3. NAMENDA [Concomitant]
     Dosage: 10 MG, QD
  4. WARFARIN [Concomitant]
  5. METOPROLOL SUCCINATE [Concomitant]
     Dosage: 10 MG, BID
  6. COUMADIN [Concomitant]
  7. ZYPREXA ZYDIS [Suspect]
     Indication: AMNESIA
     Dosage: 15 MG, EACH MORNING
     Dates: start: 20080915
  8. ARICEPT [Concomitant]
     Dosage: 10 MG, QD
  9. TRAZODONE HCL [Concomitant]
     Dosage: 50 MG, PRN

REACTIONS (8)
  - GASTROINTESTINAL HAEMORRHAGE [None]
  - PROTHROMBIN LEVEL INCREASED [None]
  - ANGER [None]
  - INFLUENZA [None]
  - DEHYDRATION [None]
  - HOSPITALISATION [None]
  - INTERNATIONAL NORMALISED RATIO INCREASED [None]
  - OFF LABEL USE [None]
